FAERS Safety Report 11037974 (Version 2)
Quarter: 2015Q2

REPORT INFORMATION
  Report Type: Spontaneous
  Country: JP (occurrence: JP)
  Receive Date: 20150416
  Receipt Date: 20150423
  Transmission Date: 20150821
  Serious: Yes (Death, Other)
  Sender: FDA-Public Use
  Company Number: JP-ASTELLAS-2015US012181

PATIENT
  Age: 60 Year
  Sex: Male

DRUGS (1)
  1. AMBISOME [Suspect]
     Active Substance: AMPHOTERICIN B
     Indication: PANCREATITIS ACUTE
     Dosage: UNK, UNKNOWN FREQ.
     Route: 041

REACTIONS (1)
  - Pancreatitis acute [Fatal]

NARRATIVE: CASE EVENT DATE: 20150329
